FAERS Safety Report 18474043 (Version 1)
Quarter: 2020Q4

REPORT INFORMATION
  Report Type: Spontaneous
  Country: US (occurrence: US)
  Receive Date: 20201106
  Receipt Date: 20201106
  Transmission Date: 20210114
  Serious: Yes (Other)
  Sender: FDA-Public Use
  Company Number: US-SA-2020SA308291

PATIENT

DRUGS (15)
  1. MORPHINE SULFATE. [Suspect]
     Active Substance: MORPHINE SULFATE
  2. OXYCODONE [Suspect]
     Active Substance: OXYCODONE
     Route: 065
  3. TRAMADOL HYDROCHLORIDE. [Suspect]
     Active Substance: TRAMADOL HYDROCHLORIDE
  4. OXYCODONE HYDROCHLORIDE. [Suspect]
     Active Substance: OXYCODONE HYDROCHLORIDE
  5. HYDROMORPHONE HYDROCHLORIDE. [Suspect]
     Active Substance: HYDROMORPHONE HYDROCHLORIDE
     Dosage: UNK
  6. OXYCODONE HYDROCHLORIDE. [Suspect]
     Active Substance: OXYCODONE HYDROCHLORIDE
  7. HYDROCODONE BITARTRATE AND ACETAMINOPHEN [Suspect]
     Active Substance: ACETAMINOPHEN\HYDROCODONE BITARTRATE
  8. MORPHINE SALT NOT SPECIFIED [Suspect]
     Active Substance: MORPHINE
  9. OXYCODONE/APAP [Suspect]
     Active Substance: ACETAMINOPHEN\OXYCODONE HYDROCHLORIDE
  10. MORPHINE SULFATE. [Suspect]
     Active Substance: MORPHINE SULFATE
  11. AMBIEN [Suspect]
     Active Substance: ZOLPIDEM TARTRATE
     Indication: INSOMNIA
  12. TRAZODONE HYDROCHLORIDE. [Suspect]
     Active Substance: TRAZODONE HYDROCHLORIDE
     Indication: INSOMNIA
  13. HYDROMORPHONE HYDROCHLORIDE. [Suspect]
     Active Substance: HYDROMORPHONE HYDROCHLORIDE
  14. MORPHINE SALT NOT SPECIFIED [Suspect]
     Active Substance: MORPHINE
  15. MORPHINE SULFATE. [Suspect]
     Active Substance: MORPHINE SULFATE

REACTIONS (17)
  - Condition aggravated [Unknown]
  - Somnolence [Unknown]
  - Initial insomnia [Unknown]
  - Overdose [Unknown]
  - Seizure [Unknown]
  - Insomnia [Unknown]
  - Drug dependence [Unknown]
  - Cardiac disorder [Unknown]
  - Product use issue [Unknown]
  - Renal failure [Unknown]
  - Restlessness [Unknown]
  - Dependence [Unknown]
  - Amnesia [Unknown]
  - Dizziness [Unknown]
  - Hallucinations, mixed [Unknown]
  - Confusional state [Unknown]
  - Disturbance in attention [Unknown]
